FAERS Safety Report 9928913 (Version 4)
Quarter: 2014Q1

REPORT INFORMATION
  Report Type: Spontaneous
  Country: JP (occurrence: JP)
  Receive Date: 20140227
  Receipt Date: 20140324
  Transmission Date: 20141002
  Serious: Yes (Death, Hospitalization, Other)
  Sender: FDA-Public Use
  Company Number: JP-PFIZER INC-2014041807

PATIENT
  Age: 69 Year
  Sex: Male
  Weight: 40 kg

DRUGS (11)
  1. CELECOX [Suspect]
     Indication: MUSCULOSKELETAL CHEST PAIN
     Dosage: 100 MG, 2X/DAY
     Route: 048
     Dates: start: 20140117, end: 2014
  2. SG GRANULE [Suspect]
     Indication: HEADACHE
     Dosage: 1 G, 3X/DAY
     Route: 048
     Dates: end: 20140203
  3. REZALTAS [Concomitant]
     Indication: HYPERTENSION
     Dosage: UNK
     Dates: end: 20140203
  4. LIVALO [Concomitant]
     Indication: HYPERLIPIDAEMIA
     Dosage: UNK
     Dates: start: 20100726, end: 20140203
  5. BAYASPIRIN [Concomitant]
     Indication: ANGINA PECTORIS
     Dosage: UNK
  6. FOLIAMIN [Concomitant]
     Indication: FOLATE DEFICIENCY
     Dosage: UNK
     Dates: end: 20140203
  7. EPADEL [Concomitant]
     Indication: HEADACHE
     Dosage: UNK
     Dates: end: 20140203
  8. MAINTATE [Concomitant]
     Indication: HYPERTENSION
     Dosage: UNK
     Dates: end: 20140203
  9. LANSOPRAZOLE [Concomitant]
     Indication: GASTRITIS
     Dosage: UNK
     Dates: end: 20140203
  10. MYONAL [Concomitant]
     Indication: HEADACHE
     Dosage: UNK
     Dates: end: 20140203
  11. ISALON [Concomitant]
     Indication: GASTRITIS
     Dosage: UNK
     Dates: end: 20140203

REACTIONS (13)
  - Hepatic failure [Fatal]
  - Hepatitis fulminant [Fatal]
  - Hepatic function abnormal [Unknown]
  - Pancytopenia [Unknown]
  - Cardio-respiratory arrest [Unknown]
  - Haemoglobin decreased [Unknown]
  - Off label use [Unknown]
  - Malaise [Unknown]
  - Sleep disorder [Unknown]
  - Pyrexia [Unknown]
  - Decreased appetite [Unknown]
  - Oxygen saturation decreased [Unknown]
  - Headache [Unknown]
